FAERS Safety Report 18746863 (Version 1)
Quarter: 2021Q1

REPORT INFORMATION
  Report Type: Spontaneous
  Country: US (occurrence: US)
  Receive Date: 20210115
  Receipt Date: 20210115
  Transmission Date: 20210419
  Serious: No
  Sender: FDA-Public Use
  Company Number: US-PARI RESPIRATORY EQUIPMENT, INC.-2020PAR00044

PATIENT
  Sex: Female
  Weight: 62.68 kg

DRUGS (2)
  1. KITABIS PAK [Suspect]
     Active Substance: TOBRAMYCIN
     Indication: CYSTIC FIBROSIS
     Dosage: 5ML (300 MG), 2X/DAY AS INSTRUCTED FOR 28 DAYS
     Dates: start: 2020
  2. TRIKAFTA [Concomitant]
     Active Substance: ELEXACAFTOR\IVACAFTOR\TEZACAFTOR

REACTIONS (2)
  - Limb injury [Unknown]
  - Infection [Unknown]

NARRATIVE: CASE EVENT DATE: 2020
